FAERS Safety Report 21177625 (Version 2)
Quarter: 2022Q3

REPORT INFORMATION
  Report Type: Spontaneous
  Country: US (occurrence: US)
  Receive Date: 20220805
  Receipt Date: 20220819
  Transmission Date: 20221027
  Serious: Yes (Other)
  Sender: FDA-Public Use
  Company Number: US-TEVA-2022-US-2059955

PATIENT
  Age: 77 Year
  Sex: Male

DRUGS (6)
  1. DORZOLAMIDE [Interacting]
     Active Substance: DORZOLAMIDE
     Indication: Open angle glaucoma
     Dosage: BOTH EYES
     Route: 047
  2. LIFITEGRAST [Interacting]
     Active Substance: LIFITEGRAST
     Indication: Open angle glaucoma
     Dosage: BOTH EYES
     Route: 047
  3. NETARSUDIL [Suspect]
     Active Substance: NETARSUDIL
     Indication: Open angle glaucoma
     Route: 065
  4. LATANOPROST [Concomitant]
     Active Substance: LATANOPROST
     Indication: Open angle glaucoma
     Dosage: AT NIGHT, BOTH EYES
     Route: 047
  5. NOVOTEARS [Concomitant]
     Indication: Product used for unknown indication
     Dosage: BOTH EYES
     Route: 047
  6. SALINE [Concomitant]
     Active Substance: SODIUM CHLORIDE
     Indication: Product used for unknown indication
     Dosage: BOTH EYES
     Route: 047

REACTIONS (4)
  - Eye discharge [Recovering/Resolving]
  - Corneal bleeding [Recovering/Resolving]
  - Corneal neovascularisation [Unknown]
  - Drug interaction [Unknown]
